FAERS Safety Report 5900733-1 (Version None)
Quarter: 2008Q3

REPORT INFORMATION
  Report Type: 
  Country: None (occurrence: None)
  Receive Date: 20080928
  Receipt Date: 20080811
  Transmission Date: 20090109
  Serious: Yes (Other)
  Sender: FDA-Public Use
  Company Number: US-BAYER-US-2007-040724

PATIENT
  Age: 63 Year
  Sex: Male
  Weight: 88 kg

DRUGS (73)
  1. MAGNEVIST [Suspect]
     Indication: ANGIOGRAM
  2. OMNISCAN [Suspect]
     Indication: ANGIOGRAM
  3. IRON SULFATETHIAMIN COMPOUND TAB [Concomitant]
  4. EPOGEN [Concomitant]
  5. LASIX [Concomitant]
  6. NORVASC [Concomitant]
  7. HYTRIN [Concomitant]
  8. REMERON [Concomitant]
  9. PROGRAF [Concomitant]
  10. COUMADIN [Concomitant]
     Dates: start: 19980101
  11. ACYCLOVIR [Concomitant]
     Route: 048
  12. ALBUTEROL [Concomitant]
     Indication: BRONCHOSPASM
  13. ATROVENT [Concomitant]
  14. CELEXA [Concomitant]
  15. CELLCEPT [Concomitant]
  16. CUVAR [Concomitant]
  17. CYTOMEL [Concomitant]
  18. DAPSONE [Concomitant]
  19. FLOMAX [Concomitant]
  20. LEVOXYL [Concomitant]
  21. PROTONIX [Concomitant]
  22. WELLBUTRIN XL [Concomitant]
  23. MAGNESIUM SUPPLEMENTATION [Concomitant]
     Indication: MINERAL SUPPLEMENTATION
  24. PHOSPHORUS SUPPLEMENTATION [Concomitant]
     Indication: SUPPLEMENTATION THERAPY
  25. BETA-AGONIST INHALERS [Concomitant]
     Route: 055
  26. PREDNISONE [Concomitant]
     Indication: POLYMYALGIA RHEUMATICA
  27. EPOGEN [Concomitant]
     Indication: ANAEMIA
     Route: 058
     Dates: start: 20030709
  28. EPOGEN [Concomitant]
     Route: 058
     Dates: start: 20030409, end: 20030708
  29. EPOGEN [Concomitant]
     Route: 058
     Dates: start: 20020329, end: 20020401
  30. EPOGEN [Concomitant]
     Route: 058
     Dates: start: 20021016, end: 20030318
  31. EPOGEN [Concomitant]
     Route: 058
     Dates: start: 20030319, end: 20030408
  32. EPOGEN [Concomitant]
     Route: 058
     Dates: start: 20020402, end: 20021015
  33. EPOGEN [Concomitant]
     Route: 058
     Dates: start: 20010507, end: 20020328
  34. EPOGEN [Concomitant]
     Route: 058
     Dates: start: 20010402, end: 20010506
  35. EPOGEN [Concomitant]
     Route: 058
  36. ANTIBIOTICS [Concomitant]
     Indication: PERITONITIS
     Dates: start: 20000601
  37. SINGULAIR [Concomitant]
     Dates: start: 20000801, end: 20000801
  38. RENAGEL [Concomitant]
     Indication: SUPPLEMENTATION THERAPY
  39. NEPHRO-VITE [Concomitant]
     Indication: SUPPLEMENTATION THERAPY
  40. VITAMIN E [Concomitant]
  41. EFFEXOR [Concomitant]
     Indication: DEPRESSION
  42. HECTEROL [Concomitant]
  43. CIPROFLOXACIN [Concomitant]
     Indication: UPPER RESPIRATORY TRACT INFECTION
     Dates: start: 20040201
  44. ASPIRIN [Concomitant]
     Dates: start: 20010101
  45. PROCRIT [Concomitant]
  46. SYNTHROID [Concomitant]
     Route: 048
  47. CORMAX [Concomitant]
  48. DITROPAN [Concomitant]
  49. ACTONEL [Concomitant]
  50. TYLENOL (CAPLET) [Concomitant]
  51. VICODIN [Concomitant]
  52. COUMADIN [Concomitant]
     Route: 048
  53. MYCOPHENOTATE MOFETIL [Concomitant]
  54. TACROLIMUS [Concomitant]
  55. PANTOPRAZOLE SODIUM [Concomitant]
  56. TAMSULOSIN HCL [Concomitant]
  57. GLUCOSAMINE AND CHONDROITIN [Concomitant]
  58. OMEGA-3 FATTY ACIDS [Concomitant]
  59. CINICALCET [Concomitant]
  60. VIOXX [Concomitant]
  61. PRILOSEC [Concomitant]
  62. COZAAR [Concomitant]
  63. VITAMIN E [Concomitant]
  64. COLACE [Concomitant]
  65. MIRALAX [Concomitant]
  66. 1.5% DEXTROSE DIALYSATE [Concomitant]
     Dates: start: 20010101
  67. SINEMET [Concomitant]
     Route: 048
  68. INFLUENZA VIRUS VACCINE TRIVALENT [Concomitant]
     Route: 030
  69. TESTOSTERONE [Concomitant]
     Dates: end: 19980101
  70. LEVAQUIN [Concomitant]
     Route: 048
     Dates: start: 20040503, end: 20040512
  71. QVAR MDI [Concomitant]
     Route: 055
  72. COMBIVENT [Concomitant]
     Route: 055
  73. DIFLUCAN [Concomitant]
     Route: 048

REACTIONS (28)
  - ALOPECIA [None]
  - ANXIETY [None]
  - ARTHRALGIA [None]
  - BLISTER [None]
  - BONE PAIN [None]
  - DRY SKIN [None]
  - EMOTIONAL DISTRESS [None]
  - FATIGUE [None]
  - GAIT DISTURBANCE [None]
  - HYPERKERATOSIS [None]
  - INJURY [None]
  - JOINT INSTABILITY [None]
  - JOINT RANGE OF MOTION DECREASED [None]
  - JOINT STIFFNESS [None]
  - MOBILITY DECREASED [None]
  - MUSCULAR WEAKNESS [None]
  - MYALGIA [None]
  - NEPHROGENIC SYSTEMIC FIBROSIS [None]
  - OEDEMA PERIPHERAL [None]
  - PAIN [None]
  - PEAU D'ORANGE [None]
  - QUALITY OF LIFE DECREASED [None]
  - RASH [None]
  - SKIN HYPERTROPHY [None]
  - SKIN INDURATION [None]
  - SKIN NODULE [None]
  - SKIN TIGHTNESS [None]
  - SUBCUTANEOUS NODULE [None]
